FAERS Safety Report 8249476-2 (Version None)
Quarter: 2012Q1

REPORT INFORMATION
  Report Type: 
  Country: None (occurrence: None)
  Receive Date: 20120316
  Receipt Date: 20100907
  Transmission Date: 20120608
  Serious: Yes (Other)
  Sender: FDA-Public Use
  Company Number: PHHY2010US52547

PATIENT
  Age: 81 Year
  Sex: Female

DRUGS (22)
  1. ASCORBIC ACID [Concomitant]
  2. HYDRODIURIL [Concomitant]
  3. CODEINE SULFATE [Concomitant]
  4. MULTIVITAMINS WITH MINERALS (NO INGREDIENT/SUBSTANES) [Concomitant]
  5. TRAMADOL HCL [Concomitant]
  6. COZAAR [Concomitant]
  7. OMEGA-3 FATTY ACIDS (OMEGA-3 FATTY ACIDS) [Concomitant]
  8. RAMIPRIDE (RAMIPRIDE) [Concomitant]
  9. PRINIVIL [Concomitant]
  10. LOMOTIL [Concomitant]
  11. ACIDOPHILUS (LACTOBACILLUS, ACIDOPHILUS) [Concomitant]
  12. MIRALAX [Concomitant]
  13. LEVOXYL [Concomitant]
  14. NIFEDIPINE [Concomitant]
  15. ENALAPRIL (ENALPRIL) [Concomitant]
  16. TENORMIN [Concomitant]
  17. CATAPRES [Concomitant]
  18. AMLODIPINE [Concomitant]
  19. AMOXICILLIN [Concomitant]
  20. TEKTURNA [Suspect]
     Indication: HYPERTENSION
     Dosage: 150 MG, QD, ORAL
     Route: 048
     Dates: start: 20100508, end: 20100608
  21. ALDACTON (SPIRONOLACTONE) [Concomitant]
  22. NAPROXEN [Concomitant]

REACTIONS (1)
  - ANGIOEDEMA [None]
